FAERS Safety Report 8391507-3 (Version None)
Quarter: 2012Q1

REPORT INFORMATION
  Report Type: 
  Country: None (occurrence: None)
  Receive Date: 20120323
  Receipt Date: 20111108
  Transmission Date: 20120608
  Serious: Yes (Disabling, Other)
  Sender: FDA-Public Use
  Company Number: 163-21880-11042082

PATIENT
  Age: 76 Year
  Sex: Male
  Weight: 92.307 kg

DRUGS (11)
  1. ASPIRIN [Concomitant]
     Indication: PRODUCT USED FOR UNKNOWN INDICATION
  2. ZINC (ZINC) (UNKNOWN) [Concomitant]
  3. REVLIMID [Suspect]
     Indication: MULTIPLE MYELOMA
     Dosage: 25 MG, DAILY FOR 21 DAYS, PO   15 MG, DAILY FOR 21 DAYS, PO    15 MG, QOD, PO
     Route: 048
     Dates: start: 20100801
  4. REVLIMID [Suspect]
     Indication: MULTIPLE MYELOMA
     Dosage: 25 MG, DAILY FOR 21 DAYS, PO   15 MG, DAILY FOR 21 DAYS, PO    15 MG, QOD, PO
     Route: 048
     Dates: start: 20100709
  5. REVLIMID [Suspect]
     Indication: MULTIPLE MYELOMA
     Dosage: 25 MG, DAILY FOR 21 DAYS, PO   15 MG, DAILY FOR 21 DAYS, PO    15 MG, QOD, PO
     Route: 048
     Dates: start: 20101216, end: 20110401
  6. LISINOPRIL [Concomitant]
  7. DEXAMETHASONE [Concomitant]
  8. WARFARIN SODIUM [Concomitant]
  9. LEVOTHYROXINE SODIUM (LEVOTHYROXINE SODIUM) (UNKNOWN) [Concomitant]
  10. AMLODIPINE/ BESYBENAZEPRIL (AMLODIPINE BESYLATE W/ BENAZEPRIL HYDROCHL [Concomitant]
  11. BLOOD TRANSFUSIONS (BLOOD AND RELATED PRODUCTS) (UNKNOWN) [Concomitant]

REACTIONS (4)
  - RASH [None]
  - PANCYTOPENIA [None]
  - HYPERSENSITIVITY [None]
  - DRUG INEFFECTIVE [None]
